FAERS Safety Report 12710411 (Version 6)
Quarter: 2020Q4

REPORT INFORMATION
  Report Type: Spontaneous
  Country: US (occurrence: US)
  Receive Date: 20160902
  Receipt Date: 20201014
  Transmission Date: 20210113
  Serious: Yes (Other)
  Sender: FDA-Public Use
  Company Number: US-PFIZER INC-2016311865

PATIENT
  Age: 68 Year
  Sex: Male
  Weight: 108.86 kg

DRUGS (14)
  1. LYRICA [Suspect]
     Active Substance: PREGABALIN
     Indication: NEURALGIA
     Dosage: 100 MG, 3X/DAY
     Route: 048
     Dates: start: 20160224
  2. INSULIN [Concomitant]
     Active Substance: INSULIN NOS
     Dosage: UNK
     Dates: start: 20160519
  3. LYRICA [Suspect]
     Active Substance: PREGABALIN
     Indication: PAIN IN EXTREMITY
     Dosage: 200 MG, 4X/DAY
     Route: 048
  4. LYRICA [Suspect]
     Active Substance: PREGABALIN
     Dosage: 200 MG, AS NEEDED (1 CAPSULE THRICE DAILY AS NEEDED)
     Route: 048
  5. RELION/NOVOLIN [Concomitant]
     Dosage: 100 IU/ML, UNK (RELION: 70/NOVOLIN: 30) (30 UNITS IN THE MORNING AND 30 AT NIGHT)
     Route: 058
     Dates: start: 20151203
  6. INSULIN [Concomitant]
     Active Substance: INSULIN NOS
     Indication: DIABETES MELLITUS
     Dosage: UNK
     Dates: start: 20160506
  7. ASPIRIN. [Concomitant]
     Active Substance: ASPIRIN
     Dosage: 81 MG, DAILY
     Route: 048
     Dates: start: 20151023
  8. CELEXA [Concomitant]
     Active Substance: CITALOPRAM HYDROBROMIDE
     Indication: DEPRESSION
     Dosage: 10 MG, DAILY
     Route: 048
     Dates: start: 20160519
  9. LEVOTHYROXINE SODIUM. [Concomitant]
     Active Substance: LEVOTHYROXINE SODIUM
     Indication: THYROID DISORDER
     Dosage: 175 UG, DAILY(1 TABLET DAILY ON EMPTY STOMACH)
     Route: 048
     Dates: start: 20131017
  10. ATORVASTATIN CALCIUM. [Concomitant]
     Active Substance: ATORVASTATIN CALCIUM
     Indication: BLOOD CHOLESTEROL INCREASED
     Dosage: 40 MG, DAILY
     Route: 048
     Dates: start: 20150529
  11. METOPROLOL TARTRATE. [Concomitant]
     Active Substance: METOPROLOL TARTRATE
     Dosage: 25 MG, 2X/DAY
     Route: 048
     Dates: start: 20160519
  12. LYRICA [Suspect]
     Active Substance: PREGABALIN
     Dosage: 200 MG, 3X/DAY
     Route: 048
  13. METOPROLOL TARTRATE. [Concomitant]
     Active Substance: METOPROLOL TARTRATE
     Dosage: 50 MG, 2X/DAY
     Route: 048
     Dates: start: 20121011
  14. METFORMIN HCL [Concomitant]
     Active Substance: METFORMIN HYDROCHLORIDE
     Dosage: 1000 MG, 2X/DAY
     Route: 048
     Dates: start: 20121011

REACTIONS (5)
  - Intentional overdose [Unknown]
  - Pain in extremity [Not Recovered/Not Resolved]
  - Discomfort [Unknown]
  - Blindness [Unknown]
  - Gait disturbance [Unknown]
